FAERS Safety Report 11054615 (Version 1)
Quarter: 2015Q2

REPORT INFORMATION
  Report Type: Spontaneous
  Country: GB (occurrence: None)
  Receive Date: 20150420
  Receipt Date: 20150420
  Transmission Date: 20150821
  Serious: Yes (Hospitalization, Other)
  Sender: FDA-Public Use
  Company Number: FK201501763

PATIENT
  Age: 68 Year
  Sex: Male
  Weight: 74 kg

DRUGS (8)
  1. CISPLATIN (MANUFACTURER UNKNOWN) (CISPLATIN) (CISPLATIN) [Suspect]
     Active Substance: CISPLATIN
     Indication: GASTRIC CANCER
     Route: 042
     Dates: start: 20121127
  2. XELODA [Suspect]
     Active Substance: CAPECITABINE
     Indication: GASTRIC CANCER
     Route: 048
     Dates: start: 20121127
  3. PARACETAMOL [Concomitant]
     Active Substance: ACETAMINOPHEN
  4. NITROFURANTOIN. [Concomitant]
     Active Substance: NITROFURANTOIN
  5. TAZOCIN (PIP/TAZO) [Concomitant]
     Active Substance: PIPERACILLIN SODIUM\TAZOBACTAM SODIUM
  6. EPIRUBICIN (MANUFACTURER UNKNOWN) (EPIRUBICIN HYDROCHLORIDE) (EPIRUBICIN HYDROCHLORIDE) [Suspect]
     Active Substance: EPIRUBICIN
     Indication: GASTRIC CANCER
     Route: 042
     Dates: start: 20121127
  7. AVASTIN [Suspect]
     Active Substance: BEVACIZUMAB
     Indication: GASTRIC CANCER
     Route: 042
     Dates: start: 20121127
  8. SIMVASTATIN. [Concomitant]
     Active Substance: SIMVASTATIN

REACTIONS (2)
  - Pulmonary embolism [None]
  - Anastomotic leak [None]

NARRATIVE: CASE EVENT DATE: 20130404
